FAERS Safety Report 8448478-0 (Version None)
Quarter: 2012Q2

REPORT INFORMATION
  Report Type: 
  Country: None (occurrence: None)
  Receive Date: 20120619
  Receipt Date: 20120604
  Transmission Date: 20120825
  Serious: Yes (Other)
  Sender: FDA-Public Use
  Company Number: FR-ROCHE-1077370

PATIENT

DRUGS (1)
  1. MABTHERA [Suspect]
     Indication: NEPHROTIC SYNDROME

REACTIONS (9)
  - GASTROENTERITIS [None]
  - NEUTROPENIA [None]
  - THROMBOCYTOPENIA [None]
  - CYTOLYTIC HEPATITIS [None]
  - VENOUS THROMBOSIS [None]
  - PYREXIA [None]
  - LYMPHADENOPATHY [None]
  - HUMAN HERPESVIRUS 6 INFECTION [None]
  - POLYCYTHAEMIA [None]
